FAERS Safety Report 9425606 (Version 1)
Quarter: 2013Q3

REPORT INFORMATION
  Report Type: Spontaneous
  Country: US (occurrence: US)
  Receive Date: 20130729
  Receipt Date: 20130729
  Transmission Date: 20140515
  Serious: No
  Sender: FDA-Public Use
  Company Number: US-MYLANLABS-2013S1008542

PATIENT
  Age: 46 Year
  Sex: Female

DRUGS (6)
  1. LEVOTHYROXINE SODIUM TABLETS, USP [Suspect]
     Indication: HYPOTHYROIDISM
     Route: 048
     Dates: start: 201303, end: 201303
  2. SPIRONOLACTONE [Suspect]
     Indication: ACNE
     Route: 048
     Dates: start: 201303, end: 201303
  3. SPIRONOLACTONE [Suspect]
     Indication: OFF LABEL USE
     Route: 048
     Dates: start: 201303, end: 201303
  4. SPIRONOLACTONE [Suspect]
     Indication: ACNE
     Route: 048
     Dates: start: 201303, end: 20130327
  5. SPIRONOLACTONE [Suspect]
     Indication: OFF LABEL USE
     Route: 048
     Dates: start: 201303, end: 20130327
  6. CAMBIA [Concomitant]
     Indication: MIGRAINE
     Route: 048

REACTIONS (3)
  - Dizziness [Recovered/Resolved]
  - Diarrhoea [Not Recovered/Not Resolved]
  - Abdominal discomfort [Not Recovered/Not Resolved]
